FAERS Safety Report 9907575 (Version 1)
Quarter: 2014Q1

REPORT INFORMATION
  Report Type: Spontaneous
  Country: US (occurrence: US)
  Receive Date: 20140218
  Receipt Date: 20140218
  Transmission Date: 20141002
  Serious: Yes (Other)
  Sender: FDA-Public Use
  Company Number: US-PFIZER INC-2014042450

PATIENT
  Age: 72 Year
  Sex: Female
  Weight: 111.11 kg

DRUGS (3)
  1. DETROL LA [Suspect]
     Indication: HYPERTONIC BLADDER
     Dosage: 4 MG, 1X/DAY
     Route: 048
     Dates: start: 2006
  2. DETROL LA [Interacting]
     Dosage: 4 MG, 1X/DAY
     Route: 048
     Dates: start: 20140121, end: 2014
  3. WARFARIN [Interacting]
     Dosage: UNK

REACTIONS (3)
  - Drug interaction [Unknown]
  - International normalised ratio increased [Unknown]
  - Drug ineffective [Unknown]
